FAERS Safety Report 6253372-X (Version None)
Quarter: 2009Q3

REPORT INFORMATION
  Report Type: 
  Country: None (occurrence: None)
  Receive Date: 20090701
  Receipt Date: 20090619
  Transmission Date: 20100115
  Serious: Yes (Hospitalization, Other)
  Sender: FDA-Public Use
  Company Number: PHHY2009BR24897

PATIENT
  Sex: Male

DRUGS (3)
  1. DIOVAN [Suspect]
     Indication: BLOOD PRESSURE
     Dosage: 80 MG 1 TABLET IN THE MORNING
     Route: 048
     Dates: start: 20030101
  2. DIOVAN [Suspect]
     Dosage: 160 MG 1 TABLET A DAY
     Route: 048
  3. ACETYLSALICYLIC ACID [Concomitant]
     Dosage: 2 TABLETS A DAY
     Route: 048

REACTIONS (8)
  - AORTIC OCCLUSION [None]
  - BLOOD CHOLESTEROL INCREASED [None]
  - CHEST PAIN [None]
  - DIARRHOEA [None]
  - FATIGUE [None]
  - HIGH DENSITY LIPOPROTEIN DECREASED [None]
  - INFARCTION [None]
  - SURGERY [None]
